FAERS Safety Report 4425135-9 (Version None)
Quarter: 2004Q3

REPORT INFORMATION
  Report Type: 
  Country: None (occurrence: None)
  Receive Date: 20040813
  Receipt Date: 20040803
  Transmission Date: 20050211
  Serious: Yes (Hospitalization)
  Sender: FDA-Public Use
  Company Number: US-AMGEN-US084356

PATIENT
  Sex: Female
  Weight: 65.8 kg

DRUGS (4)
  1. NEULASTA [Suspect]
     Indication: CHEMOTHERAPY
     Route: 058
     Dates: start: 20040719, end: 20040719
  2. KYTRIL [Suspect]
     Dates: start: 20040719, end: 20040720
  3. ADRIAMYCIN PFS [Concomitant]
     Dates: start: 20040719
  4. CYTOXAN [Concomitant]
     Dates: start: 20040719

REACTIONS (3)
  - HYPERSENSITIVITY [None]
  - OROPHARYNGEAL SWELLING [None]
  - THROAT TIGHTNESS [None]
